FAERS Safety Report 9450932 (Version 1)
Quarter: 2013Q3

REPORT INFORMATION
  Report Type: Spontaneous
  Country: BR (occurrence: BR)
  Receive Date: 20130809
  Receipt Date: 20130809
  Transmission Date: 20140515
  Serious: Yes (Hospitalization, Other)
  Sender: FDA-Public Use
  Company Number: PHHY2013BR056512

PATIENT
  Age: 24 Year
  Sex: Male

DRUGS (3)
  1. RITALINA [Suspect]
     Indication: ATTENTION DEFICIT/HYPERACTIVITY DISORDER
     Dosage: 2 DF, DAILY
     Route: 048
     Dates: start: 201209
  2. RITALINA [Suspect]
     Dosage: 2 UNK, DAILY
     Route: 048
     Dates: start: 201212
  3. RITALIN LA [Suspect]
     Indication: ATTENTION DEFICIT/HYPERACTIVITY DISORDER
     Dosage: 1 DF, DAILY
     Route: 048
     Dates: start: 201211

REACTIONS (2)
  - Cardiac failure [Unknown]
  - Heart rate increased [Recovered/Resolved]
